FAERS Safety Report 15648456 (Version 8)
Quarter: 2022Q1

REPORT INFORMATION
  Report Type: Spontaneous
  Country: US (occurrence: US)
  Receive Date: 20181122
  Receipt Date: 20220201
  Transmission Date: 20220424
  Serious: Yes (Other)
  Sender: FDA-Public Use
  Company Number: US-PFIZER INC-2018480705

PATIENT
  Age: 51 Year
  Sex: Female

DRUGS (2)
  1. XELJANZ XR [Suspect]
     Active Substance: TOFACITINIB CITRATE
     Indication: Rheumatoid arthritis
     Dosage: 11 MG, 1X/DAY
     Route: 048
     Dates: start: 2017
  2. XELJANZ XR [Suspect]
     Active Substance: TOFACITINIB CITRATE
     Dosage: 11 MG, ALTERNATE DAY (TAKING MEDICATION EVERY OTHER DAY))
     Dates: start: 202005

REACTIONS (8)
  - Road traffic accident [Unknown]
  - Tooth disorder [Unknown]
  - Tooth injury [Unknown]
  - Intentional product misuse [Unknown]
  - Malaise [Unknown]
  - Condition aggravated [Unknown]
  - Stress [Unknown]
  - Body height decreased [Unknown]

NARRATIVE: CASE EVENT DATE: 20170101
